FAERS Safety Report 14624054 (Version 1)
Quarter: 2018Q1

REPORT INFORMATION
  Report Type: Spontaneous
  Country: JP (occurrence: JP)
  Receive Date: 20180312
  Receipt Date: 20180312
  Transmission Date: 20180509
  Serious: Yes (Hospitalization)
  Sender: FDA-Public Use
  Company Number: JP-ABBVIE-18S-087-2283704-00

PATIENT
  Sex: Female

DRUGS (1)
  1. CLARITHROMYCIN. [Suspect]
     Active Substance: CLARITHROMYCIN
     Indication: NASOPHARYNGITIS
     Dosage: UNK UNK, QW
     Route: 048
     Dates: start: 201801

REACTIONS (1)
  - Gastrointestinal haemorrhage [Recovered/Resolved]
